FAERS Safety Report 10524008 (Version 1)
Quarter: 2014Q4

REPORT INFORMATION
  Report Type: Spontaneous
  Country: None (occurrence: None)
  Receive Date: 20141015
  Receipt Date: 20141015
  Transmission Date: 20150528
  Serious: Yes (Hospitalization)
  Sender: FDA-Public Use
  Company Number: None

PATIENT
  Age: 54 Year
  Sex: Female
  Weight: 61.4 kg

DRUGS (2)
  1. TRIBUSS [Concomitant]
  2. CISPLATIN. [Suspect]
     Active Substance: CISPLATIN
     Dosage: 40 MG/M2, 6 WEEKLY CYCLES, TOTAL DOSE ADMINISTERED 68 MG

REACTIONS (2)
  - Lymphopenia [None]
  - Vaginal haemorrhage [None]

NARRATIVE: CASE EVENT DATE: 20140909
